FAERS Safety Report 23605416 (Version 1)
Quarter: 2024Q1

REPORT INFORMATION
  Report Type: Spontaneous
  Country: US (occurrence: None)
  Receive Date: 20240306
  Receipt Date: 20240306
  Transmission Date: 20240409
  Serious: Yes (Hospitalization)
  Sender: FDA-Public Use
  Company Number: None

PATIENT
  Age: 69 Year
  Sex: Male

DRUGS (1)
  1. STELARA [Suspect]
     Active Substance: USTEKINUMAB
     Indication: Crohn^s disease
     Dosage: OTHER FREQUENCY : EVERY8WEEK2;?
     Route: 058
     Dates: start: 202301

REACTIONS (3)
  - Cerebrovascular accident [None]
  - Crohn^s disease [None]
  - Diarrhoea [None]

NARRATIVE: CASE EVENT DATE: 20240201
